FAERS Safety Report 12161907 (Version 1)
Quarter: 2016Q1

REPORT INFORMATION
  Report Type: Spontaneous
  Country: US (occurrence: US)
  Receive Date: 20160309
  Receipt Date: 20160309
  Transmission Date: 20160526
  Serious: Yes (Other)
  Sender: FDA-Public Use
  Company Number: US-TEVA-641966ACC

PATIENT
  Age: 28 Year
  Sex: Female
  Weight: 78.54 kg

DRUGS (2)
  1. METFORMIN [Concomitant]
     Active Substance: METFORMIN HYDROCHLORIDE
  2. PARAGARD T 380A [Suspect]
     Active Substance: COPPER
     Indication: CONTRACEPTION
     Dates: start: 2013, end: 20160217

REACTIONS (3)
  - Embedded device [Recovered/Resolved]
  - Dysmenorrhoea [Unknown]
  - Metrorrhagia [Not Recovered/Not Resolved]

NARRATIVE: CASE EVENT DATE: 20160217
